FAERS Safety Report 5588266-6 (Version None)
Quarter: 2008Q1

REPORT INFORMATION
  Report Type: 
  Country: None (occurrence: None)
  Receive Date: 20080111
  Receipt Date: 20080110
  Transmission Date: 20080703
  Serious: Yes (Death)
  Sender: FDA-Public Use
  Company Number: US-ASTRAZENECA-2008AC00103

PATIENT
  Age: 43 Year
  Sex: Female

DRUGS (11)
  1. QUETIAPINE [Suspect]
     Route: 048
  2. GABAPENTIN [Suspect]
     Route: 048
  3. BUPROPION HCL [Suspect]
     Route: 048
  4. BETA BLOCKER [Suspect]
     Route: 048
  5. ALBUTEROL [Suspect]
     Route: 048
  6. FLUOXETINE HCL [Suspect]
     Route: 048
  7. SPIRONOLACTONE [Suspect]
     Route: 048
  8. THYROID PREPARATION [Suspect]
     Route: 048
  9. FUROSEMIDE [Suspect]
     Route: 048
  10. NAPROXEN [Suspect]
     Route: 048
  11. COCAINE [Suspect]
     Route: 048

REACTIONS (1)
  - COMPLETED SUICIDE [None]
